FAERS Safety Report 15843746 (Version 7)
Quarter: 2022Q3

REPORT INFORMATION
  Report Type: Report from Study
  Country: FR (occurrence: None)
  Receive Date: 20190118
  Receipt Date: 20220908
  Transmission Date: 20221026
  Serious: Yes (Death, Life-Threatening, Hospitalization, Other)
  Sender: FDA-Public Use
  Company Number: 2018SF00895

PATIENT
  Age: 19330 Day
  Sex: Male
  Weight: 61 kg

DRUGS (19)
  1. DURVALUMAB [Suspect]
     Active Substance: DURVALUMAB
     Indication: Non-small cell lung cancer stage III
     Dosage: 625 MILLIGRAMS
     Route: 042
     Dates: start: 20180718
  2. DURVALUMAB [Suspect]
     Active Substance: DURVALUMAB
     Indication: Squamous cell carcinoma
     Dosage: 625 MILLIGRAMS
     Route: 042
     Dates: start: 20180718
  3. DURVALUMAB [Suspect]
     Active Substance: DURVALUMAB
     Indication: Non-small cell lung cancer stage III
     Dosage: 620MILLIGRAMS
     Route: 042
     Dates: start: 20180802
  4. DURVALUMAB [Suspect]
     Active Substance: DURVALUMAB
     Indication: Squamous cell carcinoma
     Dosage: 620MILLIGRAMS
     Route: 042
     Dates: start: 20180802
  5. DURVALUMAB [Suspect]
     Active Substance: DURVALUMAB
     Indication: Non-small cell lung cancer stage III
     Dosage: 610 MILLIGRAMS
     Route: 042
     Dates: start: 20180816
  6. DURVALUMAB [Suspect]
     Active Substance: DURVALUMAB
     Indication: Squamous cell carcinoma
     Dosage: 610 MILLIGRAMS
     Route: 042
     Dates: start: 20180816
  7. DURVALUMAB [Suspect]
     Active Substance: DURVALUMAB
     Indication: Non-small cell lung cancer stage III
     Dosage: 610 MILLIGRAMS
     Route: 042
     Dates: start: 20181009, end: 20181009
  8. DURVALUMAB [Suspect]
     Active Substance: DURVALUMAB
     Indication: Squamous cell carcinoma
     Dosage: 610 MILLIGRAMS
     Route: 042
     Dates: start: 20181009, end: 20181009
  9. CISPLATIN [Suspect]
     Active Substance: CISPLATIN
     Indication: Squamous cell carcinoma
     Route: 065
     Dates: start: 20180308, end: 20180315
  10. CISPLATIN [Suspect]
     Active Substance: CISPLATIN
     Indication: Squamous cell carcinoma
     Route: 065
     Dates: start: 20180406, end: 20180413
  11. CISPLATIN [Suspect]
     Active Substance: CISPLATIN
     Indication: Squamous cell carcinoma
     Route: 065
     Dates: start: 20180504, end: 20180511
  12. CISPLATIN [Suspect]
     Active Substance: CISPLATIN
     Indication: Squamous cell carcinoma
     Route: 065
     Dates: start: 20180601, end: 20180608
  13. VINORELBINE [Suspect]
     Active Substance: VINORELBINE TARTRATE
     Indication: Squamous cell carcinoma
     Route: 065
     Dates: start: 20180308, end: 20180315
  14. VINORELBINE [Suspect]
     Active Substance: VINORELBINE TARTRATE
     Indication: Squamous cell carcinoma
     Route: 065
     Dates: start: 20180406, end: 20180413
  15. VINORELBINE [Suspect]
     Active Substance: VINORELBINE TARTRATE
     Indication: Squamous cell carcinoma
     Route: 065
     Dates: start: 20180504, end: 20180511
  16. VINORELBINE [Suspect]
     Active Substance: VINORELBINE TARTRATE
     Indication: Squamous cell carcinoma
     Route: 065
     Dates: start: 20180601, end: 20180608
  17. ALPRAZOLAM [Concomitant]
     Active Substance: ALPRAZOLAM
     Indication: Anxiety
     Route: 065
     Dates: start: 20180401
  18. EBASTINE [Concomitant]
     Active Substance: EBASTINE
     Indication: Pruritus
     Route: 048
     Dates: start: 20180503
  19. XANAX [Concomitant]
     Active Substance: ALPRAZOLAM
     Indication: Anxiety
     Route: 048
     Dates: start: 20180503

REACTIONS (9)
  - Peripheral ischaemia [Fatal]
  - Pancreatitis acute [Recovering/Resolving]
  - Electrocardiogram QT prolonged [Recovered/Resolved]
  - General physical health deterioration [Recovered/Resolved]
  - Post procedural diarrhoea [Recovered/Resolved]
  - Weight decreased [Recovered/Resolved]
  - Vomiting [Recovered/Resolved]
  - Arterial disorder [Unknown]
  - Fatigue [Unknown]

NARRATIVE: CASE EVENT DATE: 20180802
